FAERS Safety Report 15964553 (Version 1)
Quarter: 2019Q1

REPORT INFORMATION
  Report Type: Spontaneous
  Country: GB (occurrence: GB)
  Receive Date: 20190215
  Receipt Date: 20190215
  Transmission Date: 20190417
  Serious: Yes (Other)
  Sender: FDA-Public Use
  Company Number: GB-TEVA-2019-GB-1011227

PATIENT
  Age: 70 Year
  Sex: Male
  Weight: 89.81 kg

DRUGS (3)
  1. CANESTEN [Concomitant]
     Active Substance: CLOTRIMAZOLE
     Indication: URINARY TRACT INFECTION
  2. TAMSULOSIN HYDROCHLORIDE. [Suspect]
     Active Substance: TAMSULOSIN HYDROCHLORIDE
     Indication: PROSTATOMEGALY
     Dosage: 400 MICROGRAM DAILY;
     Route: 048
     Dates: end: 20181207
  3. LIXIANA [Concomitant]
     Active Substance: EDOXABAN TOSYLATE
     Route: 065

REACTIONS (3)
  - Myalgia [Not Recovered/Not Resolved]
  - Genital pain [Unknown]
  - Incontinence [Not Recovered/Not Resolved]

NARRATIVE: CASE EVENT DATE: 20181212
